FAERS Safety Report 13959465 (Version 1)
Quarter: 2017Q3

REPORT INFORMATION
  Report Type: Spontaneous
  Country: US (occurrence: None)
  Receive Date: 20170912
  Receipt Date: 20170912
  Transmission Date: 20171128
  Serious: Yes (Hospitalization)
  Sender: FDA-Public Use
  Company Number: None

PATIENT
  Age: 51 Year
  Sex: Female

DRUGS (12)
  1. KRILL OMEGA [Concomitant]
  2. LETROZOLE. [Concomitant]
     Active Substance: LETROZOLE
  3. CALCIUM [Concomitant]
     Active Substance: CALCIUM
  4. ALPRAZOLAM. [Concomitant]
     Active Substance: ALPRAZOLAM
  5. IRON [Concomitant]
     Active Substance: IRON
  6. GELCLAIR GEL [Concomitant]
  7. METOPROLOL TARTRATE. [Concomitant]
     Active Substance: METOPROLOL TARTRATE
  8. MORPHINE SUL [Concomitant]
     Active Substance: MORPHINE SULFATE
  9. TARCEVA [Suspect]
     Active Substance: ERLOTINIB HYDROCHLORIDE
     Indication: LUNG NEOPLASM MALIGNANT
     Route: 048
     Dates: start: 20170526
  10. VITAMIN D3 [Concomitant]
     Active Substance: CHOLECALCIFEROL
  11. AMLODIPINE [Concomitant]
     Active Substance: AMLODIPINE BESYLATE
  12. LEVETIRACETA [Concomitant]

REACTIONS (2)
  - Fall [None]
  - Nasopharyngitis [None]
